FAERS Safety Report 14100385 (Version 4)
Quarter: 2017Q4

REPORT INFORMATION
  Report Type: Spontaneous
  Country: US (occurrence: US)
  Receive Date: 20171017
  Receipt Date: 20171226
  Transmission Date: 20180321
  Serious: Yes (Hospitalization, Other)
  Sender: FDA-Public Use
  Company Number: US-ALLERGAN-1758622US

PATIENT
  Age: 50 Year
  Sex: Male

DRUGS (1)
  1. DALVANCE [Suspect]
     Active Substance: DALBAVANCIN
     Indication: BACTERAEMIA
     Dosage: UNK , SINGLE
     Route: 042
     Dates: start: 201504

REACTIONS (2)
  - Off label use [Unknown]
  - Bacteraemia [Unknown]
